FAERS Safety Report 5912511-8 (Version None)
Quarter: 2008Q4

REPORT INFORMATION
  Report Type: 
  Country: None (occurrence: None)
  Receive Date: 20081007
  Receipt Date: 20081007
  Transmission Date: 20090506
  Serious: Yes (Life-Threatening, Other)
  Sender: FDA-Public Use
  Company Number: None

PATIENT
  Age: 48 Year
  Sex: Female
  Weight: 63.5036 kg

DRUGS (1)
  1. MERIDIA [Suspect]
     Indication: WEIGHT CONTROL
     Dosage: 1 TABLET DAILY PO
     Route: 048
     Dates: start: 20040310, end: 20080810

REACTIONS (4)
  - ANAL CANCER [None]
  - DISSOCIATIVE DISORDER [None]
  - MENTAL DISORDER [None]
  - SUICIDAL BEHAVIOUR [None]
